FAERS Safety Report 5586060-3 (Version None)
Quarter: 2007Q4

REPORT INFORMATION
  Report Type: 
  Country: None (occurrence: None)
  Receive Date: 20071205
  Receipt Date: 20070925
  Transmission Date: 20080405
  Serious: Yes (Other)
  Sender: FDA-Public Use
  Company Number: HQWYE313225SEP07

PATIENT
  Age: 28 Year
  Sex: Male
  Weight: 79.45 kg

DRUGS (3)
  1. EFFEXOR XR [Suspect]
     Indication: DEPRESSION
     Dosage: 150 MG 1X PER 1 DAY, ORAL
     Route: 048
     Dates: start: 20070831, end: 20070911
  2. XANAX [Concomitant]
  3. ALBUTEROL [Concomitant]

REACTIONS (1)
  - CONVULSION [None]
